FAERS Safety Report 8503806-2 (Version None)
Quarter: 2012Q3

REPORT INFORMATION
  Report Type: 
  Country: None (occurrence: None)
  Receive Date: 20120711
  Receipt Date: 20120627
  Transmission Date: 20120928
  Serious: No
  Sender: FDA-Public Use
  Company Number: CA-JNJFOC-20120701991

PATIENT
  Sex: Male
  Weight: 82 kg

DRUGS (3)
  1. PREDNISONE [Concomitant]
     Route: 048
  2. REMICADE [Suspect]
     Indication: CROHN'S DISEASE
     Route: 042
     Dates: start: 20070523
  3. DIOVAN [Concomitant]
     Route: 048

REACTIONS (2)
  - BRONCHITIS [None]
  - PYREXIA [None]
